FAERS Safety Report 7538035-2 (Version None)
Quarter: 2011Q2

REPORT INFORMATION
  Report Type: 
  Country: None (occurrence: None)
  Receive Date: 20110609
  Receipt Date: 20110609
  Transmission Date: 20111010
  Serious: Yes (Life-Threatening, Hospitalization)
  Sender: FDA-Public Use
  Company Number: PHHO2004US08110

PATIENT
  Age: 73 Year
  Sex: Male
  Weight: 82.7 kg

DRUGS (14)
  1. CALCIUM CARBONATE [Concomitant]
     Dates: start: 20031124
  2. GLEEVEC [Suspect]
     Indication: PROSTATE CANCER
     Dosage: 600 MG, QD
     Route: 048
     Dates: start: 20040517, end: 20040531
  3. DECADRON [Concomitant]
     Indication: PAIN
     Dates: start: 20040408
  4. DITROPAN XL [Concomitant]
     Indication: URINARY TRACT INFECTION
     Dates: start: 20040416
  5. ASPIRIN [Concomitant]
     Indication: PAIN
     Dates: start: 20030807
  6. PRILOSEC [Concomitant]
     Indication: GASTROOESOPHAGEAL REFLUX DISEASE
     Dates: start: 20040408
  7. OXYCODONE HCL [Concomitant]
     Indication: PAIN
     Dates: start: 20040510
  8. IMODIUM [Concomitant]
  9. CELEBREX [Concomitant]
     Indication: OSTEOARTHRITIS
     Dates: start: 20040105
  10. COMPAZINE [Concomitant]
     Indication: NAUSEA
     Dates: start: 20040521
  11. VITAMIN D [Concomitant]
     Dates: start: 20031124
  12. MULTI-VITAMINS [Concomitant]
     Dates: start: 20030807
  13. TAXOTERE [Concomitant]
     Indication: PROSTATE CANCER
     Dosage: 30 MG/M2, QW
     Route: 042
     Dates: start: 20040517, end: 20040531
  14. AMBIEN [Concomitant]
     Indication: INSOMNIA
     Dates: start: 20040416, end: 20040516

REACTIONS (13)
  - DEHYDRATION [None]
  - PYREXIA [None]
  - HAEMATOCRIT DECREASED [None]
  - DIVERTICULITIS [None]
  - TRANSAMINASES INCREASED [None]
  - RECTAL HAEMORRHAGE [None]
  - DEPRESSION [None]
  - DIARRHOEA [None]
  - ATRIAL FLUTTER [None]
  - DIVERTICULAR PERFORATION [None]
  - HEPATIC STEATOSIS [None]
  - NAUSEA [None]
  - ABDOMINAL PAIN LOWER [None]
